FAERS Safety Report 9135908 (Version 3)
Quarter: 2014Q1

REPORT INFORMATION
  Report Type: Spontaneous
  Country: US (occurrence: US)
  Receive Date: 20130219
  Receipt Date: 20140325
  Transmission Date: 20141002
  Serious: Yes (Other)
  Sender: FDA-Public Use
  Company Number: US-BRISTOL-MYERS SQUIBB COMPANY-17128869

PATIENT
  Age: 84 Year
  Sex: Female

DRUGS (2)
  1. ORENCIA FOR INJ 250 MG/VIAL [Suspect]
     Indication: RHEUMATOID ARTHRITIS
     Dosage: LAST INFUSION WAS ON 07NOV2012,02JAN2013,30JAN2013?NO OF INFUSION:3
     Route: 042
     Dates: start: 20120912
  2. SULFASALAZINE [Concomitant]

REACTIONS (7)
  - Cataract [Unknown]
  - Drug ineffective [Unknown]
  - Poor venous access [Unknown]
  - Fatigue [Unknown]
  - Stomatitis [Unknown]
  - Glossodynia [Unknown]
  - Eyelid oedema [Unknown]
